FAERS Safety Report 12116602 (Version 2)
Quarter: 2016Q1

REPORT INFORMATION
  Report Type: Report from Study
  Country: HT (occurrence: HT)
  Receive Date: 20160225
  Receipt Date: 20160318
  Transmission Date: 20160526
  Serious: Yes (Hospitalization, Other)
  Sender: FDA-Public Use
  Company Number: HT-ABBVIE-15P-073-1522887-00

PATIENT
  Age: 69 Year
  Sex: Male
  Weight: 43.9 kg

DRUGS (5)
  1. IRON FOLATE [Concomitant]
     Indication: PRODUCT USED FOR UNKNOWN INDICATION
     Route: 048
     Dates: start: 200310
  2. KALETRA [Suspect]
     Active Substance: LOPINAVIR\RITONAVIR
     Route: 048
     Dates: start: 20151228
  3. RIFABUTIN. [Concomitant]
     Active Substance: RIFABUTIN
     Indication: TUBERCULOSIS
     Dosage: IN THE MORNING
     Route: 048
     Dates: start: 20150911
  4. KALETRA [Suspect]
     Active Substance: LOPINAVIR\RITONAVIR
     Indication: HIV INFECTION
     Route: 048
     Dates: start: 20150911, end: 20151208
  5. SULFAMETHOXAZOLE AND TRIMETHOPRIM [Concomitant]
     Active Substance: SULFAMETHOXAZOLE\TRIMETHOPRIM
     Indication: PRODUCT USED FOR UNKNOWN INDICATION
     Route: 048
     Dates: start: 200310

REACTIONS (2)
  - Benign prostatic hyperplasia [Not Recovered/Not Resolved]
  - Acute kidney injury [Recovered/Resolved]

NARRATIVE: CASE EVENT DATE: 20151209
